FAERS Safety Report 7626759-8 (Version None)
Quarter: 2011Q3

REPORT INFORMATION
  Report Type: 
  Country: None (occurrence: None)
  Receive Date: 20110721
  Receipt Date: 20110708
  Transmission Date: 20111222
  Serious: Yes (Other)
  Sender: FDA-Public Use
  Company Number: US-UCBSA-8037353

PATIENT
  Sex: Female
  Weight: 1.815 kg

DRUGS (6)
  1. KEPPRA [Suspect]
     Indication: COMPLEX PARTIAL SEIZURES
     Route: 064
  2. LOVENOX [Concomitant]
     Indication: DEEP VEIN THROMBOSIS
     Dosage: DOSE FREQ.: DAILY
     Route: 064
     Dates: start: 20080121
  3. FOLIC ACID [Concomitant]
     Indication: SUPPLEMENTATION THERAPY
     Route: 064
     Dates: start: 20071129
  4. FLEXERIL [Concomitant]
     Indication: PAIN
     Route: 064
  5. TEGRETOL [Concomitant]
     Indication: CONVULSION
     Dosage: DOSE FREQ.: DAILY
     Route: 064
  6. AMOXICILLIN [Concomitant]
     Indication: URINARY TRACT INFECTION
     Route: 064
     Dates: start: 20080124

REACTIONS (2)
  - MATERNAL EXPOSURE DURING PREGNANCY [None]
  - SMALL FOR DATES BABY [None]
